FAERS Safety Report 4893099-X (Version None)
Quarter: 2005Q4

REPORT INFORMATION
  Report Type: 
  Country: None (occurrence: None)
  Receive Date: 20051223
  Receipt Date: 20051005
  Transmission Date: 20060501
  Serious: Yes (Other)
  Sender: FDA-Public Use
  Company Number: 217696

PATIENT
  Age: 47 Year
  Sex: Female
  Weight: 62.7 kg

DRUGS (6)
  1. AVASTIN [Suspect]
     Indication: COLORECTAL CANCER METASTATIC
     Dosage: 270 MG, Q2W, INTRAVENOUS
     Route: 042
     Dates: start: 20050426
  2. IRINOTECAN HCL [Suspect]
     Indication: COLORECTAL CANCER METASTATIC
  3. FLUOROURACIL [Suspect]
     Indication: COLORECTAL CANCER METASTATIC
  4. LEUCOVORIN CALCIUM [Suspect]
     Indication: COLORECTAL CANCER METASTATIC
  5. POTASSIUM (POTASSIUM NOS) [Concomitant]
  6. MULTIVITAMIN (MULTIVITAMINS NOS) [Concomitant]

REACTIONS (1)
  - WOUND DEHISCENCE [None]
